FAERS Safety Report 8025094-6 (Version None)
Quarter: 2012Q1

REPORT INFORMATION
  Report Type: 
  Country: None (occurrence: None)
  Receive Date: 20120105
  Receipt Date: 20120103
  Transmission Date: 20120608
  Serious: Yes (Hospitalization)
  Sender: FDA-Public Use
  Company Number: FR-ROCHE-1027234

PATIENT
  Sex: Male

DRUGS (8)
  1. ACETAMINOPHEN [Concomitant]
     Route: 048
  2. PANTOPRAZOLE [Concomitant]
     Route: 048
  3. VASTAREL [Concomitant]
     Route: 048
  4. FLAGYL [Suspect]
     Indication: CHOLECYSTITIS
     Route: 042
     Dates: start: 20110828, end: 20110904
  5. CIPROFLOXACIN [Suspect]
     Indication: PRODUCT USED FOR UNKNOWN INDICATION
     Route: 048
     Dates: start: 20110904, end: 20110921
  6. LASIX [Concomitant]
     Route: 048
  7. ROCEPHIN [Suspect]
     Indication: CHOLECYSTITIS
     Route: 042
     Dates: start: 20110823, end: 20110902
  8. SIMVASTATIN [Concomitant]
     Route: 048

REACTIONS (1)
  - CHOLESTASIS [None]
